FAERS Safety Report 20455705 (Version 1)
Quarter: 2022Q1

REPORT INFORMATION
  Report Type: Spontaneous
  Country: US (occurrence: None)
  Receive Date: 20220210
  Receipt Date: 20220210
  Transmission Date: 20220423
  Serious: Yes (unspecified)
  Sender: FDA-Public Use
  Company Number: None

PATIENT
  Age: 44 Year
  Sex: Male
  Weight: 101.2 kg

DRUGS (4)
  1. KRYSTEXXA [Suspect]
     Active Substance: PEGLOTICASE
     Indication: Gout
     Dosage: FREQUENCY : ONCE;?
     Route: 041
     Dates: start: 20220128, end: 20220128
  2. Hydrocortisone 100 mg IVP [Concomitant]
     Dates: start: 20220128, end: 20220128
  3. Diphenhydramine 25 mg IVP [Concomitant]
     Dates: start: 20220128, end: 20220128
  4. EpiPen 0.3 [Concomitant]
     Dates: start: 20220128, end: 20220128

REACTIONS (8)
  - Infusion related reaction [None]
  - Nausea [None]
  - Chest pain [None]
  - Abdominal pain upper [None]
  - Ocular hyperaemia [None]
  - Heart rate increased [None]
  - Respiratory rate increased [None]
  - Drug hypersensitivity [None]

NARRATIVE: CASE EVENT DATE: 20220128
